FAERS Safety Report 20076670 (Version 4)
Quarter: 2021Q4

REPORT INFORMATION
  Report Type: Spontaneous
  Country: ES (occurrence: ES)
  Receive Date: 20211116
  Receipt Date: 20211209
  Transmission Date: 20220303
  Serious: Yes (Life-Threatening, Hospitalization, Other)
  Sender: FDA-Public Use
  Company Number: ES-NOVARTISPH-NVSC2021ES261775

PATIENT
  Age: 80 Year
  Sex: Female

DRUGS (12)
  1. MOXIFLOXACIN [Interacting]
     Active Substance: MOXIFLOXACIN
     Indication: Skin ulcer
     Dosage: UNK
     Route: 065
  2. FLUOXETINE [Interacting]
     Active Substance: FLUOXETINE HYDROCHLORIDE
     Indication: Depression
     Dosage: 20 MG, UNKNOWN
     Route: 048
  3. SOTALOL [Interacting]
     Active Substance: SOTALOL
     Indication: Atrial fibrillation
     Dosage: 80 MG, UNKNOWN
     Route: 065
     Dates: start: 2016
  4. SOTALOL [Interacting]
     Active Substance: SOTALOL
     Indication: Cardioversion
     Dosage: UNK
     Route: 065
     Dates: start: 2018
  5. IRBESARTAN [Concomitant]
     Active Substance: IRBESARTAN
     Indication: Hypertension
     Dosage: 300 MG, UNKNOWN
     Route: 065
  6. FELODIPINE [Concomitant]
     Active Substance: FELODIPINE
     Indication: Hypertension
     Dosage: 5 MG, UNKNOWN
     Route: 065
  7. GLIMEPIRIDE [Concomitant]
     Active Substance: GLIMEPIRIDE
     Indication: Type 2 diabetes mellitus
     Dosage: 20 MG, UNKNOWN
     Route: 065
  8. LINAGLIPTIN [Concomitant]
     Active Substance: LINAGLIPTIN
     Indication: Type 2 diabetes mellitus
     Dosage: 5 MG, UNKNOWN
     Route: 065
  9. SINTROM [Concomitant]
     Active Substance: ACENOCOUMAROL
     Indication: Anticoagulation drug level therapeutic
     Dosage: UNK
     Route: 065
  10. CHLORTHALIDONE [Concomitant]
     Active Substance: CHLORTHALIDONE
     Indication: Hypertension
     Dosage: 50 MG, UNKNOWN
     Route: 065
  11. ALEUDRIN [Concomitant]
     Indication: Product used for unknown indication
     Dosage: UNK
     Route: 065
  12. MAGNESIUM SULFATE [Concomitant]
     Active Substance: MAGNESIUM SULFATE
     Indication: Product used for unknown indication
     Dosage: UNK
     Route: 065

REACTIONS (9)
  - Electrocardiogram QT prolonged [Recovering/Resolving]
  - Drug interaction [Unknown]
  - Torsade de pointes [Recovered/Resolved]
  - Cardio-respiratory arrest [Recovered/Resolved]
  - Ventricular tachycardia [Recovered/Resolved]
  - Bradyphrenia [Recovered/Resolved]
  - Tinnitus [Recovered/Resolved]
  - Dizziness [Recovered/Resolved]
  - Syncope [Recovered/Resolved]
